FAERS Safety Report 19266432 (Version 1)
Quarter: 2021Q2

REPORT INFORMATION
  Report Type: Spontaneous
  Country: US (occurrence: US)
  Receive Date: 20210518
  Receipt Date: 20210518
  Transmission Date: 20210717
  Serious: Yes (Other)
  Sender: FDA-Public Use
  Company Number: US-CELLTRION INC.-2021US006597

PATIENT

DRUGS (2)
  1. INFLECTRA [Suspect]
     Active Substance: INFLIXIMAB-DYYB
     Indication: CROHN^S DISEASE
     Dosage: 10MG/KG EVERY 6 WEEKS BY IV (5 VIALS)
     Route: 042
     Dates: start: 20210405
  2. INFLECTRA [Suspect]
     Active Substance: INFLIXIMAB-DYYB
     Dosage: 10MG/KG EVERY 6 WEEKS BY IV
     Route: 042

REACTIONS (3)
  - Overdose [Unknown]
  - Therapy interrupted [Unknown]
  - Product availability issue [Unknown]
